FAERS Safety Report 11154845 (Version 3)
Quarter: 2015Q3

REPORT INFORMATION
  Report Type: Report from Study
  Country: US (occurrence: US)
  Receive Date: 20150602
  Receipt Date: 20150706
  Transmission Date: 20151125
  Serious: Yes (Hospitalization)
  Sender: FDA-Public Use
  Company Number: US-ABBVIE-15K-163-1398097-00

PATIENT
  Age: 12 Year
  Sex: Male
  Weight: 37.68 kg

DRUGS (5)
  1. HUMIRA [Suspect]
     Active Substance: ADALIMUMAB
     Route: 065
     Dates: start: 20150604, end: 20150604
  2. HUMIRA [Suspect]
     Active Substance: ADALIMUMAB
     Route: 065
     Dates: start: 201506, end: 201506
  3. HUMIRA [Suspect]
     Active Substance: ADALIMUMAB
     Indication: CROHN^S DISEASE
     Route: 065
     Dates: start: 20150515, end: 20150515
  4. HUMIRA [Suspect]
     Active Substance: ADALIMUMAB
     Dosage: SOMETHING ABOUT ADDITIONAL 80 MG DOSE
     Route: 065
     Dates: start: 201506
  5. TYLENOL [Concomitant]
     Active Substance: ACETAMINOPHEN
     Indication: PRODUCT USED FOR UNKNOWN INDICATION

REACTIONS (8)
  - Frequent bowel movements [Not Recovered/Not Resolved]
  - Feeding disorder [Not Recovered/Not Resolved]
  - Crohn^s disease [Recovering/Resolving]
  - Depression [Unknown]
  - Blood disorder [Unknown]
  - Asthenia [Unknown]
  - Dehydration [Not Recovered/Not Resolved]
  - Gastrointestinal haemorrhage [Recovering/Resolving]

NARRATIVE: CASE EVENT DATE: 201505
